FAERS Safety Report 4655115-X (Version None)
Quarter: 2005Q2

REPORT INFORMATION
  Report Type: 
  Country: None (occurrence: None)
  Receive Date: 20050504
  Receipt Date: 20050419
  Transmission Date: 20051028
  Serious: Yes (Hospitalization, Other)
  Sender: FDA-Public Use
  Company Number: 2005JP000753

PATIENT
  Sex: Male
  Weight: 22.6799 kg

DRUGS (9)
  1. PROTOPIC [Suspect]
     Indication: DERMATITIS ATOPIC
     Dosage: 0.10 %,  TOPICAL
     Route: 061
     Dates: start: 20020626, end: 20050329
  2. CEFACLOR [Concomitant]
  3. SOLON (SOFALCONE) [Concomitant]
  4. LOCOID [Concomitant]
  5. GENTACIN(GENTAMICIN SULFATE) [Concomitant]
  6. BLEOMYCIN [Concomitant]
  7. FUCIDIN LEO (FUSIDATEVSODIUM) [Concomitant]
  8. ALLEGRA [Concomitant]
  9. BLEOMYCIN SULFATE [Concomitant]

REACTIONS (5)
  - ACTINIC KERATOSIS [None]
  - SCAR [None]
  - SKIN ATROPHY [None]
  - SKIN ULCER [None]
  - SQUAMOUS CELL CARCINOMA [None]
